FAERS Safety Report 4264806-4 (Version None)
Quarter: 2004Q1

REPORT INFORMATION
  Report Type: 
  Country: None (occurrence: None)
  Receive Date: 20040105
  Receipt Date: 20031219
  Transmission Date: 20041129
  Serious: Yes (Hospitalization)
  Sender: FDA-Public Use
  Company Number: 182969

PATIENT
  Age: 53 Year
  Sex: Female
  Weight: 81.6475 kg

DRUGS (17)
  1. AVONEX [Suspect]
     Indication: MULTIPLE SCLEROSIS
     Dosage: 30 MCG QW IM
     Route: 030
     Dates: start: 19970101, end: 20030824
  2. AVONEX [Suspect]
     Indication: MULTIPLE SCLEROSIS
     Dosage: 30 MCG QW IM
     Route: 030
     Dates: start: 20030831
  3. PROZAC [Concomitant]
  4. AMANTADINE HCL [Concomitant]
  5. MACRODANTIN [Concomitant]
  6. XANAX [Concomitant]
  7. BACLOFEN [Concomitant]
  8. NEURONTIN [Concomitant]
  9. LOVASTATIN [Concomitant]
  10. ATIVAN [Concomitant]
  11. DARVOCCET [Concomitant]
  12. VERAPAMIL [Concomitant]
  13. HYDROCHLOROTHIAZIDE [Concomitant]
  14. LISINOPRIL [Concomitant]
  15. FLUOXETINE [Concomitant]
  16. PROMETHAZINE [Concomitant]
  17. NITROFURANTOIN [Concomitant]

REACTIONS (9)
  - BLOOD CHOLESTEROL INCREASED [None]
  - CARDIOMEGALY [None]
  - CONDITION AGGRAVATED [None]
  - MEMORY IMPAIRMENT [None]
  - MULTIPLE SCLEROSIS [None]
  - MUSCLE SPASMS [None]
  - PAIN IN EXTREMITY [None]
  - PANIC ATTACK [None]
  - URINARY TRACT INFECTION [None]
